FAERS Safety Report 9234905 (Version 1)
Quarter: 2013Q2

REPORT INFORMATION
  Report Type: Spontaneous
  Country: US (occurrence: US)
  Receive Date: 20130416
  Receipt Date: 20130416
  Transmission Date: 20140414
  Serious: No
  Sender: FDA-Public Use
  Company Number: US-BANPHARM-20120219

PATIENT
  Age: 84 Year
  Sex: Male
  Weight: 58.96 kg

DRUGS (5)
  1. ALEVE LIQUID GELS 220 MG [Suspect]
     Indication: ARTHRITIS
     Dosage: 2 DF, PRN,
     Route: 048
     Dates: start: 201209, end: 20120929
  2. TRAMADOL [Concomitant]
  3. CARDIZEM [Concomitant]
  4. PLAVIX [Concomitant]
  5. ACIPHEX [Concomitant]

REACTIONS (1)
  - Drug ineffective [Unknown]
